FAERS Safety Report 16688828 (Version 1)
Quarter: 2019Q3

REPORT INFORMATION
  Report Type: Spontaneous
  Country: US (occurrence: US)
  Receive Date: 20190809
  Receipt Date: 20190809
  Transmission Date: 20191004
  Serious: Yes (Death)
  Sender: FDA-Public Use
  Company Number: None

PATIENT
  Age: 73 Year
  Sex: Female

DRUGS (6)
  1. PROTONIX, RANEXA, SPIRIVA [Concomitant]
  2. XARELTA, XGEVA [Concomitant]
  3. CAPECITABINE. [Suspect]
     Active Substance: CAPECITABINE
     Indication: BREAST CANCER FEMALE
     Dosage: ?          OTHER FREQUENCY:BID FOR 2 WEEKS;?
     Route: 048
     Dates: start: 20170815, end: 20181216
  4. VITAMIN B12, VITAMIN C [Concomitant]
  5. ATORVASTATIN, CALCIUM/D, DILTIAZEM [Concomitant]
  6. FUROSEMIDE, LEVOTHYROXIN, PROBIOTIC [Concomitant]

REACTIONS (1)
  - Death [None]

NARRATIVE: CASE EVENT DATE: 20181216
